FAERS Safety Report 8588665-4 (Version None)
Quarter: 2012Q3

REPORT INFORMATION
  Report Type: 
  Country: None (occurrence: None)
  Receive Date: 20120813
  Receipt Date: 20120801
  Transmission Date: 20120928
  Serious: Yes (Hospitalization)
  Sender: FDA-Public Use
  Company Number: US-BAYER-2012-079033

PATIENT
  Age: 33 Year
  Sex: Female

DRUGS (10)
  1. YAZ [Suspect]
     Dosage: UNK
     Dates: start: 20090910, end: 20100519
  2. JUICE PLUS [Concomitant]
  3. VALIUM [Concomitant]
  4. CYMBALTA [Concomitant]
  5. ZANAFLEX [Concomitant]
  6. INDERAL [Concomitant]
  7. PRILOSEC [Concomitant]
  8. PROZAC [Concomitant]
     Dosage: 10 MG, DAILY
  9. LYRICA [Concomitant]
  10. PHENERGAN HCL [Concomitant]

REACTIONS (1)
  - PULMONARY EMBOLISM [None]
